FAERS Safety Report 8900628 (Version 1)
Quarter: 2012Q4

REPORT INFORMATION
  Report Type: 
  Country: US (occurrence: US)
  Receive Date: 20121109
  Receipt Date: 20121109
  Transmission Date: 20130627
  Serious: Yes (Other)
  Sender: FDA-Public Use
  Company Number: US-UCBSA-069274

PATIENT
  Age: 32 Year
  Sex: Female

DRUGS (3)
  1. CIMZIA [Suspect]
     Indication: CROHN^S DISEASE
     Dates: start: 20111110
  2. DILAUTID [Concomitant]
     Route: 042
  3. LACTED RINGERS [Concomitant]
     Dosage: ONE LITRE THREE TIMES A WEEK

REACTIONS (3)
  - Rectal haemorrhage [Recovered/Resolved]
  - Back pain [Unknown]
  - Abdominal pain [Unknown]
